FAERS Safety Report 8489832-0 (Version None)
Quarter: 2012Q3

REPORT INFORMATION
  Report Type: 
  Country: None (occurrence: None)
  Receive Date: 20120705
  Receipt Date: 20120627
  Transmission Date: 20120928
  Serious: Yes (Hospitalization)
  Sender: FDA-Public Use
  Company Number: DE-ACTELION-A-US2007-18243

PATIENT

DRUGS (22)
  1. ASPIRIN [Concomitant]
  2. SIMVASTATIN [Concomitant]
  3. SYMBICORT [Concomitant]
  4. MARCUMAR [Concomitant]
  5. BISOPROLOL FUMARATE [Concomitant]
  6. LANITOP [Concomitant]
  7. CLARITHROMYCIN [Concomitant]
  8. BRONCHICUM EXTRA STERK [Concomitant]
  9. VENTAVIS [Suspect]
     Indication: PULMONARY HYPERTENSION
     Dosage: 5 UG, 6 X DAY
     Route: 055
     Dates: start: 20060130
  10. TIOTROPIUM BROMIDE [Concomitant]
  11. TORSEMIDE [Concomitant]
  12. SILDENAFIL [Concomitant]
  13. CALCIUM CARBONATE [Concomitant]
  14. TRACLEER [Concomitant]
     Indication: PULMONARY HYPERTENSION
     Route: 048
     Dates: start: 20070617
  15. CARBIMAZOLE [Concomitant]
  16. ACETYLCYSTEINE [Concomitant]
  17. OXYGEN [Concomitant]
  18. POTASSIUM [Concomitant]
  19. INSPRA [Concomitant]
  20. ATROVENT [Concomitant]
  21. PANTOPRAZOLE [Concomitant]
  22. MUCOSOLVAN [Concomitant]

REACTIONS (21)
  - HYPERCAPNIA [None]
  - PNEUMONIA [None]
  - METABOLIC ALKALOSIS [None]
  - WALKING DISABILITY [None]
  - OEDEMA PERIPHERAL [None]
  - WEIGHT INCREASED [None]
  - PULMONARY HYPERTENSION [None]
  - GENERAL PHYSICAL HEALTH DETERIORATION [None]
  - CHRONIC OBSTRUCTIVE PULMONARY DISEASE [None]
  - RESPIRATORY FAILURE [None]
  - DYSPNOEA [None]
  - CHEST PAIN [None]
  - CONDITION AGGRAVATED [None]
  - RIGHT VENTRICULAR FAILURE [None]
  - SPUTUM DISCOLOURED [None]
  - ATRIAL FIBRILLATION [None]
  - NON-CARDIAC CHEST PAIN [None]
  - GASTRITIS [None]
  - HYPOXIA [None]
  - COUGH [None]
  - NASOPHARYNGITIS [None]
